FAERS Safety Report 7763955-3 (Version None)
Quarter: 2011Q3

REPORT INFORMATION
  Report Type: 
  Country: None (occurrence: None)
  Receive Date: 20110916
  Receipt Date: 20110909
  Transmission Date: 20111222
  Serious: Yes (Other)
  Sender: FDA-Public Use
  Company Number: 2011MA013467

PATIENT
  Age: 74 Year
  Sex: Female

DRUGS (13)
  1. DILTIAZEM HCL [Concomitant]
  2. HYDROXOCOBALAMIN [Concomitant]
  3. ACETAMINOPHEN [Concomitant]
  4. RISEDRONIC ACID [Concomitant]
  5. FLUOROURACIL [Concomitant]
  6. RAMIPRIL [Suspect]
  7. LEVOTHYROXINE SODIUM [Concomitant]
  8. SIMVASTATIN [Concomitant]
  9. ACETYLSALICYLIC ACID SRT [Concomitant]
  10. ALCLOMETASONE [Concomitant]
  11. CETIRIZINE HCL [Concomitant]
  12. ISPAGHULA  HUSK [Concomitant]
  13. AMITRIPTYLINE HCL [Concomitant]

REACTIONS (1)
  - RESTLESSNESS [None]
